FAERS Safety Report 5760225-X (Version None)
Quarter: 2008Q2

REPORT INFORMATION
  Report Type: 
  Country: None (occurrence: None)
  Receive Date: 20080602
  Receipt Date: 20080519
  Transmission Date: 20081010
  Serious: Yes (Other)
  Sender: FDA-Public Use
  Company Number: 2008001258

PATIENT
  Age: 69 Year
  Sex: Female
  Weight: 63.9572 kg

DRUGS (4)
  1. LISTERINE WHITENING QUICK DISSOLVING STRIPS (NO ACTIVE INGREDIENT) [Suspect]
     Indication: DENTAL CARE
     Dosage: 2 STRIPS, ONCE, ORAL
     Route: 048
     Dates: start: 20080110, end: 20080110
  2. LANTUS [Concomitant]
  3. CYMBALTA [Concomitant]
  4. NOVOLOG [Concomitant]

REACTIONS (4)
  - LIP SWELLING [None]
  - LIP ULCERATION [None]
  - PAIN [None]
  - PRURITUS [None]
